FAERS Safety Report 23697406 (Version 1)
Quarter: 2024Q2

REPORT INFORMATION
  Report Type: Spontaneous
  Country: JP (occurrence: JP)
  Receive Date: 20240402
  Receipt Date: 20240402
  Transmission Date: 20240717
  Serious: Yes (Other)
  Sender: FDA-Public Use
  Company Number: JP-OTSUKA-2024_008323

PATIENT
  Age: 18 Month
  Sex: Female

DRUGS (7)
  1. BUSULFEX [Suspect]
     Active Substance: BUSULFAN
     Indication: Cord blood transplant therapy
     Dosage: 0.8MG/KG/DOSE X 4, DAY-6 TO -5
     Route: 065
  2. FLUDARABINE PHOSPHATE [Suspect]
     Active Substance: FLUDARABINE PHOSPHATE
     Indication: Cord blood transplant therapy
     Dosage: 30MG/M2/DAY, DAY-11 TO -8
     Route: 065
  3. ETOPOSIDE [Suspect]
     Active Substance: ETOPOSIDE
     Indication: Cord blood transplant therapy
     Dosage: 20MG/KG/DAY, DAY-7
     Route: 065
  4. MELPHALAN [Suspect]
     Active Substance: MELPHALAN
     Indication: Cord blood transplant therapy
     Dosage: 2MG/KG/DAY, DAY-4 TO -2
     Route: 065
  5. TACROLIMUS [Suspect]
     Active Substance: TACROLIMUS
     Indication: Prophylaxis against graft versus host disease
     Dosage: UNK
     Route: 065
  6. MYCOPHENOLATE MOFETIL [Suspect]
     Active Substance: MYCOPHENOLATE MOFETIL
     Indication: Prophylaxis against graft versus host disease
     Dosage: UNK
     Route: 065
  7. MYCOPHENOLATE MOFETIL [Suspect]
     Active Substance: MYCOPHENOLATE MOFETIL
     Dosage: 600MG/M2/DAY, IN TWO DIVIDED DOSES
     Route: 065

REACTIONS (1)
  - Liver disorder [Recovering/Resolving]
